FAERS Safety Report 12659536 (Version 1)
Quarter: 2016Q3

REPORT INFORMATION
  Report Type: Spontaneous
  Country: US (occurrence: None)
  Receive Date: 20160816
  Receipt Date: 20160816
  Transmission Date: 20161109
  Serious: Yes (Hospitalization)
  Sender: FDA-Public Use
  Company Number: None

PATIENT
  Age: 20 Year
  Sex: Male
  Weight: 95.3 kg

DRUGS (3)
  1. ONCASPAR [Suspect]
     Active Substance: PEGASPARGASE
     Dates: end: 20160214
  2. MITOXANTRONE HYDROCHLORIDE. [Suspect]
     Active Substance: MITOXANTRONE HYDROCHLORIDE
     Dates: end: 20160213
  3. VINCRISTINE SULFATE. [Suspect]
     Active Substance: VINCRISTINE SULFATE
     Dates: end: 20160212

REACTIONS (6)
  - Febrile neutropenia [None]
  - Lactic acidosis [None]
  - Bacteraemia [None]
  - Septic shock [None]
  - Device related sepsis [None]
  - Pancytopenia [None]

NARRATIVE: CASE EVENT DATE: 20160220
